FAERS Safety Report 15180391 (Version 2)
Quarter: 2018Q3

REPORT INFORMATION
  Report Type: Spontaneous
  Country: CN (occurrence: CN)
  Receive Date: 20180723
  Receipt Date: 20180723
  Transmission Date: 20181010
  Serious: Yes (Hospitalization, Other)
  Sender: FDA-Public Use
  Company Number: CN-AXELLIA-001788

PATIENT
  Age: 21 Year
  Sex: Female

DRUGS (7)
  1. OMEPRAZOLE. [Concomitant]
     Active Substance: OMEPRAZOLE
  2. SULFAMETHOXAZOLE/SULFAMETHOXAZOLE SODIUM [Concomitant]
  3. POLYMYXIN B. [Suspect]
     Active Substance: POLYMYXIN B
     Indication: KLEBSIELLA INFECTION
     Dosage: 500,000 UNITS Q.12 H, ADMINISTERED AT ONCE.
     Route: 042
  4. HEPARIN [Concomitant]
     Active Substance: HEPARIN SODIUM
  5. TIGECYCLINE. [Concomitant]
     Active Substance: TIGECYCLINE
  6. MEROPENEM. [Concomitant]
     Active Substance: MEROPENEM
  7. COLISTIN [Interacting]
     Active Substance: COLISTIN
     Indication: KLEBSIELLA INFECTION
     Dates: start: 20170504

REACTIONS (6)
  - Skin hyperpigmentation [Not Recovered/Not Resolved]
  - Hepatic function abnormal [Unknown]
  - Faeces discoloured [Unknown]
  - Drug interaction [Unknown]
  - Disseminated intravascular coagulation [Recovering/Resolving]
  - Acute kidney injury [Unknown]
